FAERS Safety Report 14004516 (Version 1)
Quarter: 2017Q3

REPORT INFORMATION
  Report Type: Spontaneous
  Country: CA (occurrence: CA)
  Receive Date: 20170922
  Receipt Date: 20170922
  Transmission Date: 20171128
  Serious: Yes (Other)
  Sender: FDA-Public Use
  Company Number: CA-ACCORD-058892

PATIENT
  Age: 64 Year
  Sex: Female
  Weight: 84.6 kg

DRUGS (8)
  1. LEVOTHYROXINE. [Concomitant]
     Active Substance: LEVOTHYROXINE
     Dosage: 0.125 MG QAM
     Route: 048
  2. CALCIUM/MAGNESIUM [Concomitant]
     Dosage: 333 MG/ 167 MG
     Route: 048
  3. COD-LIVER OIL [Concomitant]
     Active Substance: FISH OIL
     Route: 048
  4. PACLITAXEL ACCORD [Suspect]
     Active Substance: PACLITAXEL
     Indication: OVARIAN CANCER
     Route: 042
     Dates: start: 20170814
  5. ROSUVASTATIN/ROSUVASTATIN CALCIUM [Concomitant]
     Dosage: 40 MG QPM
     Route: 048
  6. TELMISARTAN. [Concomitant]
     Active Substance: TELMISARTAN
     Dosage: 40 MG QAM
     Route: 048
  7. ERGOCALCIFEROL. [Concomitant]
     Active Substance: ERGOCALCIFEROL
     Route: 048
  8. CARBOPLATIN. [Suspect]
     Active Substance: CARBOPLATIN
     Indication: OVARIAN CANCER
     Dates: start: 20170814

REACTIONS (2)
  - Nausea [Recovered/Resolved]
  - Hot flush [Recovered/Resolved]

NARRATIVE: CASE EVENT DATE: 20170814
